FAERS Safety Report 19717519 (Version 1)
Quarter: 2021Q3

REPORT INFORMATION
  Report Type: Spontaneous
  Country: JP (occurrence: JP)
  Receive Date: 20210818
  Receipt Date: 20210818
  Transmission Date: 20211014
  Serious: Yes (Other)
  Sender: FDA-Public Use
  Company Number: JP-BRECKENRIDGE PHARMACEUTICAL, INC.-2115236

PATIENT
  Sex: Female

DRUGS (8)
  1. DEPAS (ETIZOLAM) [Concomitant]
     Active Substance: ETIZOLAM
  2. MAGNESIUM OXIDE. [Concomitant]
     Active Substance: MAGNESIUM OXIDE
  3. OMEPRAZOLE. [Suspect]
     Active Substance: OMEPRAZOLE
     Route: 048
  4. LAXOBERON (SODIUM PICOSULFATE HYDRATE) [Concomitant]
  5. LEVAMYL [Concomitant]
  6. BI_SIFROL (PRAMIPEXOLE HYDROCHLORIDE HYDRATE) [Suspect]
     Active Substance: PRAMIPEXOLE DIHYDROCHLORIDE
  7. PRIMPERAN [Suspect]
     Active Substance: METOCLOPRAMIDE HYDROCHLORIDE
  8. LEXOTAN (BROMAZEPAM) [Concomitant]
     Active Substance: BROMAZEPAM

REACTIONS (10)
  - Renal disorder [Unknown]
  - Akathisia [Unknown]
  - Tinnitus [Unknown]
  - Autonomic nervous system imbalance [Unknown]
  - Gastrooesophageal reflux disease [Unknown]
  - Diabetes mellitus [Unknown]
  - Depression [Unknown]
  - Tonsillectomy [Unknown]
  - Deafness [Unknown]
  - Obsessive-compulsive disorder [Unknown]
